FAERS Safety Report 8578439-2 (Version None)
Quarter: 2012Q3

REPORT INFORMATION
  Report Type: 
  Country: None (occurrence: None)
  Receive Date: 20120808
  Receipt Date: 20120731
  Transmission Date: 20120928
  Serious: Yes (Hospitalization)
  Sender: FDA-Public Use
  Company Number: US-JNJFOC-20120712529

PATIENT
  Age: 57 Year
  Sex: Female
  Weight: 69 kg

DRUGS (13)
  1. IBUPROFEN [Suspect]
     Route: 048
     Dates: start: 20120701, end: 20120718
  2. CELECOXIB [Suspect]
     Route: 048
     Dates: start: 20120307
  3. NAPROXEN [Suspect]
     Route: 048
     Dates: start: 20120307
  4. IBUPROFEN [Suspect]
     Route: 048
     Dates: start: 20120307
  5. IBUPROFEN [Suspect]
     Route: 048
  6. PLACEBO [Suspect]
     Indication: RHEUMATOID ARTHRITIS
     Route: 048
     Dates: start: 20120307
  7. CELECOXIB [Suspect]
     Indication: RHEUMATOID ARTHRITIS
     Route: 048
  8. UNKNOWN MEDICATION [Suspect]
     Route: 048
     Dates: start: 20120307
  9. PLACEBO [Suspect]
     Route: 048
  10. UNKNOWN MEDICATION [Suspect]
     Indication: OSTEOARTHRITIS
     Route: 048
  11. IBUPROFEN [Suspect]
     Indication: OSTEOARTHRITIS
     Route: 048
  12. NAPROXEN [Suspect]
     Indication: RHEUMATOID ARTHRITIS
     Route: 048
  13. NEXIUM [Concomitant]
     Indication: PROPHYLAXIS
     Route: 048
     Dates: start: 20120307

REACTIONS (1)
  - GASTROOESOPHAGEAL REFLUX DISEASE [None]
